FAERS Safety Report 17386935 (Version 3)
Quarter: 2020Q1

REPORT INFORMATION
  Report Type: Report from Study
  Country: HU (occurrence: HU)
  Receive Date: 20200206
  Receipt Date: 20200323
  Transmission Date: 20200409
  Serious: Yes (Hospitalization, Other)
  Sender: FDA-Public Use
  Company Number: HU-INCYTE CORPORATION-2020IN000682

PATIENT

DRUGS (4)
  1. JAKAVI [Suspect]
     Active Substance: RUXOLITINIB
     Dosage: 10 MG, QD
     Route: 048
  2. COVEREX [Concomitant]
     Active Substance: PERINDOPRIL ERBUMINE
     Indication: HYPERTENSION
     Dosage: 5 MG
     Route: 065
     Dates: start: 20110824
  3. JAKAVI [Suspect]
     Active Substance: RUXOLITINIB
     Indication: POLYCYTHAEMIA VERA
     Dosage: 10 MG, BID
     Route: 048
     Dates: start: 20190724
  4. TALLITON [Concomitant]
     Active Substance: CARVEDILOL
     Indication: HYPERTENSION
     Dosage: 12.5 MG, BID
     Route: 065
     Dates: start: 20110824

REACTIONS (6)
  - Haematoma [Unknown]
  - Hepatic vein thrombosis [Recovered/Resolved]
  - Budd-Chiari syndrome [Unknown]
  - Limb injury [Unknown]
  - Inappropriate schedule of product administration [Unknown]
  - Fall [Unknown]

NARRATIVE: CASE EVENT DATE: 201908
